FAERS Safety Report 6699884-6 (Version None)
Quarter: 2010Q2

REPORT INFORMATION
  Report Type: 
  Country: None (occurrence: None)
  Receive Date: 20100428
  Receipt Date: 20100416
  Transmission Date: 20101027
  Serious: Yes (Hospitalization)
  Sender: FDA-Public Use
  Company Number: US-RANBAXY-2010US-33286

PATIENT

DRUGS (17)
  1. GANCICLOVIR [Suspect]
     Indication: ANTIVIRAL PROPHYLAXIS
     Dosage: 1000 MG, 3 IN 1 D
     Route: 048
     Dates: start: 20080721, end: 20080829
  2. GANCICLOVIR [Suspect]
     Dosage: 1000 MG, 3 IN 1 D
     Route: 048
     Dates: start: 20080904, end: 20081028
  3. MARIBAVIR PLACEBO [Suspect]
     Indication: ANTIVIRAL PROPHYLAXIS
     Dosage: 100 MG, 2 IN 1 D
     Route: 048
     Dates: start: 20080721, end: 20080829
  4. MARIBAVIR PLACEBO [Suspect]
     Dosage: 100 MG, 2 IN 1 D
     Route: 048
     Dates: start: 20080904, end: 20081028
  5. ACYCLOVIR PLACEBO [Suspect]
     Indication: ANTIVIRAL PROPHYLAXIS
     Dosage: 400 MG, 2 IN 1 D
     Route: 048
     Dates: start: 20080721, end: 20080829
  6. ACYCLOVIR PLACEBO [Suspect]
     Dosage: 400 MG, 2 IN 1 D
     Route: 048
     Dates: start: 20080904, end: 20081028
  7. PREDNISOLON [Suspect]
     Indication: PROPHYLAXIS AGAINST TRANSPLANT REJECTION
     Dosage: 15MG, QD
     Route: 048
     Dates: start: 20080726, end: 20080829
  8. ALVEDON [Concomitant]
     Indication: PAIN
     Route: 048
  9. BACTRIM [Concomitant]
     Indication: ANTIFUNGAL PROPHYLAXIS
     Route: 048
  10. DEXOFEN [Concomitant]
     Indication: PAIN
     Dosage: UNK
     Route: 048
     Dates: start: 20080725
  11. MYCOSTATIN [Concomitant]
     Indication: ANTIFUNGAL PROPHYLAXIS
     Dosage: UNK
     Route: 048
     Dates: start: 20080715
  12. NEXIUM [Concomitant]
     Indication: HIATUS HERNIA
     Dosage: UNK
     Dates: start: 20080727
  13. NEXIUM [Concomitant]
     Indication: PROPHYLAXIS AGAINST GASTROINTESTINAL ULCER
  14. NICOTINELL [Concomitant]
     Indication: NICOTINE DEPENDENCE
     Dosage: UNK
     Route: 062
     Dates: start: 20080713
  15. NOVOMIX 30 FLEXPEN [Concomitant]
     Indication: DIABETES MELLITUS
     Dosage: UNK
     Route: 065
     Dates: start: 20080724
  16. PROGRAF [Concomitant]
     Indication: PROPHYLAXIS AGAINST TRANSPLANT REJECTION
     Dosage: 1-4 MG, 2 IN 1 D
     Route: 048
     Dates: start: 20080713
  17. TROMBYL [Concomitant]
     Indication: THROMBOSIS PROPHYLAXIS
     Dosage: UNK
     Route: 048
     Dates: start: 20080724

REACTIONS (1)
  - PSYCHOTIC DISORDER [None]
